FAERS Safety Report 4504316-X (Version None)
Quarter: 2004Q4

REPORT INFORMATION
  Report Type: 
  Country: None (occurrence: None)
  Receive Date: 20041115
  Receipt Date: 20041014
  Transmission Date: 20050328
  Serious: Yes (Other)
  Sender: FDA-Public Use
  Company Number: HQWYE909320OCT04

PATIENT
  Sex: Male

DRUGS (2)
  1. EFFEXOR XR [Suspect]
  2. NORFLEX [Suspect]

REACTIONS (4)
  - AGGRESSION [None]
  - AMNESIA [None]
  - INTENTIONAL MISUSE [None]
  - LOSS OF CONSCIOUSNESS [None]
